FAERS Safety Report 5453443-1 (Version None)
Quarter: 2007Q3

REPORT INFORMATION
  Report Type: 
  Country: None (occurrence: None)
  Receive Date: 20070913
  Receipt Date: 20070830
  Transmission Date: 20080115
  Serious: Yes (Hospitalization)
  Sender: FDA-Public Use
  Company Number: DSA_30515-2007

PATIENT
  Sex: Female

DRUGS (4)
  1. ATIVAN [Suspect]
     Indication: CONVULSION
     Dosage: 2 MG ORAL
     Route: 048
     Dates: start: 19980101, end: 20070715
  2. ATIVAN [Suspect]
     Indication: CONVULSION
     Dosage: 4 MG ORAL
     Route: 048
     Dates: start: 20070716, end: 20070720
  3. ATIVAN [Suspect]
     Indication: CONVULSION
     Dosage: 2 MG ORAL
     Route: 048
     Dates: end: 20070716
  4. ATIVAN [Suspect]
     Indication: CONVULSION
     Dosage: 4 MG ORAL
     Route: 048
     Dates: start: 20070721

REACTIONS (7)
  - ABASIA [None]
  - CONVULSION [None]
  - DRUG EFFECT DECREASED [None]
  - FEAR [None]
  - FEELING ABNORMAL [None]
  - HALLUCINATION, AUDITORY [None]
  - PHARMACEUTICAL PRODUCT COMPLAINT [None]
